FAERS Safety Report 26142847 (Version 1)
Quarter: 2025Q4

REPORT INFORMATION
  Report Type: Spontaneous
  Country: US (occurrence: US)
  Receive Date: 20251211
  Receipt Date: 20251211
  Transmission Date: 20260117
  Serious: No
  Sender: TOLMAR
  Company Number: US-Tolmar-TLM-2025-09161

PATIENT

DRUGS (3)
  1. ELIGARD [Suspect]
     Active Substance: LEUPROLIDE ACETATE
     Indication: Product used for unknown indication
     Dosage: BOX LOT: 15513CUS, EXP: 03-2027.?SERIAL: 3393022846988.?GTIN: 00362935227106.?SYRINGE A: 15513AUS, E
  2. ELIGARD [Suspect]
     Active Substance: LEUPROLIDE ACETATE
  3. DEVICE [Suspect]
     Active Substance: DEVICE
     Indication: Product used for unknown indication
     Dosage: BOX LOT: 15513CUS, EXP: 03-2027.?SERIAL: 3393022846988.?GTIN: 00362935227106.?SYRINGE A: 15513AUS, E

REACTIONS (2)
  - Panic reaction [Unknown]
  - Intentional dose omission [Unknown]
